FAERS Safety Report 5989544-9 (Version None)
Quarter: 2008Q4

REPORT INFORMATION
  Report Type: 
  Country: None (occurrence: None)
  Receive Date: 20081210
  Receipt Date: 20081210
  Transmission Date: 20090506
  Serious: Yes (Death, Other)
  Sender: FDA-Public Use
  Company Number: US-KINGPHARMUSA00001-K200801395

PATIENT
  Age: 69 Year
  Sex: Female

DRUGS (1)
  1. BICILLIN L-A [Suspect]
     Dosage: UNK
     Route: 030
     Dates: start: 20051101, end: 20051201

REACTIONS (7)
  - AUTOIMMUNE HEPATITIS [None]
  - BRONCHOPNEUMONIA [None]
  - COAGULOPATHY [None]
  - DEATH [None]
  - JAUNDICE [None]
  - LIVER FUNCTION TEST ABNORMAL [None]
  - SEPTIC SHOCK [None]
